FAERS Safety Report 16048703 (Version 1)
Quarter: 2019Q1

REPORT INFORMATION
  Report Type: Report from Study
  Country: US (occurrence: US)
  Receive Date: 20190307
  Receipt Date: 20190307
  Transmission Date: 20190418
  Serious: Yes (Hospitalization)
  Sender: FDA-Public Use
  Company Number: US-TEVA-2019-US-998258

PATIENT
  Age: 40 Year
  Sex: Female

DRUGS (1)
  1. COPAXONE [Suspect]
     Active Substance: GLATIRAMER ACETATE
     Indication: MULTIPLE SCLEROSIS
     Route: 058
     Dates: start: 20190102, end: 20190213

REACTIONS (15)
  - Disturbance in attention [Recovering/Resolving]
  - Feeling hot [Unknown]
  - Injection site inflammation [Unknown]
  - Skin swelling [Unknown]
  - Adverse reaction [Unknown]
  - Aphasia [Recovering/Resolving]
  - Neuralgia [Recovering/Resolving]
  - Injection site cellulitis [Recovered/Resolved]
  - Multiple sclerosis relapse [Unknown]
  - Injection site erythema [Unknown]
  - Injection site warmth [Unknown]
  - Balance disorder [Recovering/Resolving]
  - Injection site swelling [Unknown]
  - Skin discolouration [Unknown]
  - Injection site mass [Not Recovered/Not Resolved]

NARRATIVE: CASE EVENT DATE: 20190107
